FAERS Safety Report 17577487 (Version 1)
Quarter: 2020Q1

REPORT INFORMATION
  Report Type: Spontaneous
  Country: ES (occurrence: ES)
  Receive Date: 20200324
  Receipt Date: 20200324
  Transmission Date: 20200409
  Serious: Yes (Hospitalization)
  Sender: FDA-Public Use
  Company Number: ES-MYLANLABS-2020M1029882

PATIENT
  Age: 94 Year
  Sex: Male

DRUGS (6)
  1. ATROALDO [Concomitant]
     Indication: DYSPNOEA
     Dosage: 40 MICROGRAM, Q6H
     Route: 048
     Dates: start: 20180320
  2. BISOPROLOL [Interacting]
     Active Substance: BISOPROLOL
     Indication: ATRIAL FIBRILLATION
     Dosage: 1.25 MILLIGRAM, QD
     Route: 048
     Dates: start: 20170621, end: 20190605
  3. ATROALDO [Concomitant]
     Indication: DYSPNOEA
     Dosage: 1 FEMTOGRAM, Q6H
     Route: 055
     Dates: start: 20180320
  4. AMIODARONE [Suspect]
     Active Substance: AMIODARONE
     Indication: ATRIAL FIBRILLATION
     Dosage: 200 MILLIGRAM, QD
     Route: 048
     Dates: start: 20170621, end: 20190607
  5. ALOPURINOL [Concomitant]
     Active Substance: ALLOPURINOL
     Indication: GOUT
     Dosage: 100 MILLIGRAM, QD
     Route: 048
     Dates: start: 20170620
  6. CITALOPRAM BEXAL [Concomitant]
     Active Substance: CITALOPRAM HYDROBROMIDE
     Indication: HYPERTENSION
     Dosage: 20 MILLIGRAM, QD
     Route: 048
     Dates: start: 20110322

REACTIONS (2)
  - Bradycardia [Recovered/Resolved]
  - Drug interaction [Unknown]

NARRATIVE: CASE EVENT DATE: 20190605
